FAERS Safety Report 4310032-X (Version None)
Quarter: 2004Q1

REPORT INFORMATION
  Report Type: 
  Country: None (occurrence: None)
  Receive Date: 20040301
  Receipt Date: 20040108
  Transmission Date: 20041129
  Serious: No
  Sender: FDA-Public Use
  Company Number: WAES 0401USA00610

PATIENT
  Age: 55 Year
  Sex: Male

DRUGS (11)
  1. ZETIA [Suspect]
     Indication: BLOOD CHOLESTEROL INCREASED
     Dosage: 10 MG/DAILY/PO
     Route: 048
     Dates: end: 20031225
  2. DIAZIDE [Concomitant]
  3. ECOTRIN [Concomitant]
  4. VALIUM [Concomitant]
  5. XALATAN [Concomitant]
  6. BACLOFEN [Concomitant]
  7. COLESTIPEL HYDROCHLORIDE [Concomitant]
  8. FOLIC ACID [Concomitant]
  9. MEPREDNISONE [Concomitant]
  10. METOPROLOL TARTRATE [Concomitant]
  11. NITROGLYCERIN [Concomitant]

REACTIONS (3)
  - BACK PAIN [None]
  - DIFFICULTY IN WALKING [None]
  - MUSCULOSKELETAL STIFFNESS [None]
